FAERS Safety Report 7811990-9 (Version None)
Quarter: 2011Q4

REPORT INFORMATION
  Report Type: 
  Country: None (occurrence: None)
  Receive Date: 20111013
  Receipt Date: 20111004
  Transmission Date: 20120403
  Serious: Yes (Other)
  Sender: FDA-Public Use
  Company Number: CA-ASTRAZENECA-2011SE36783

PATIENT
  Age: 25541 Day
  Sex: Male
  Weight: 103.8 kg

DRUGS (12)
  1. ENTROPHEN [Concomitant]
     Indication: CORONARY ARTERY DISEASE
     Route: 048
     Dates: start: 20040101
  2. LEVOCARBIDOPA [Concomitant]
     Indication: PARKINSON'S DISEASE
     Dosage: 100/25 MG DAILY
     Route: 048
     Dates: start: 20071201
  3. ATORVASTATIN [Concomitant]
     Indication: HYPERCHOLESTEROLAEMIA
     Route: 048
     Dates: start: 20100212
  4. LENOLTEC NO3 [Concomitant]
     Indication: ARTHRALGIA
     Dosage: 300/15/30 MG AS REQUIRED
     Route: 048
     Dates: start: 20070101
  5. TEMAZEPAM [Concomitant]
     Indication: INSOMNIA
     Route: 048
     Dates: start: 20071001
  6. CELEBREX [Suspect]
     Indication: OSTEOARTHRITIS
     Route: 048
     Dates: start: 20060101
  7. TAMSULOSIN HCL [Concomitant]
     Indication: DIURETIC THERAPY
     Route: 048
     Dates: start: 20061201
  8. GLUCOZAMINE [Concomitant]
     Indication: OSTEOARTHRITIS
     Dosage: DAILY
     Route: 048
     Dates: start: 20110321
  9. ATENOLOL [Concomitant]
     Indication: HYPERTENSION
     Route: 048
     Dates: start: 20100212
  10. LUPRON [Concomitant]
     Indication: PROSTATE CANCER
     Route: 058
     Dates: start: 20080509
  11. ECTOSONE [Concomitant]
     Indication: RASH
     Dosage: AS REQUIRED
     Route: 061
     Dates: start: 20100513
  12. VANDETANIB [Suspect]
     Indication: PROSTATE CANCER
     Route: 048
     Dates: start: 20110325, end: 20110421

REACTIONS (3)
  - PHOTOSENSITIVITY REACTION [None]
  - SKIN EXFOLIATION [None]
  - OEDEMA PERIPHERAL [None]
